FAERS Safety Report 11877735 (Version 11)
Quarter: 2017Q3

REPORT INFORMATION
  Report Type: Report from Study
  Country: JP (occurrence: JP)
  Receive Date: 20151230
  Receipt Date: 20170726
  Transmission Date: 20171127
  Serious: Yes (Hospitalization)
  Sender: FDA-Public Use
  Company Number: JP-AMGEN-JPNCT2015139380

PATIENT
  Age: 73 Year
  Sex: Female
  Weight: 53 kg

DRUGS (40)
  1. ROMIPLOSTIM [Suspect]
     Active Substance: ROMIPLOSTIM
     Dosage: 8 MUG/KG, QD
     Route: 058
     Dates: start: 20140627
  2. ROMIPLOSTIM [Suspect]
     Active Substance: ROMIPLOSTIM
     Dosage: 10 MUG/KG, QWK
     Route: 058
     Dates: start: 20140704
  3. ROMIPLOSTIM [Suspect]
     Active Substance: ROMIPLOSTIM
     Dosage: 8 MUG/KG, QD
     Route: 058
     Dates: start: 20150903
  4. ROMIPLOSTIM [Suspect]
     Active Substance: ROMIPLOSTIM
     Dosage: 7 MUG/KG, QD
     Route: 058
     Dates: start: 20151001
  5. ROMIPLOSTIM [Suspect]
     Active Substance: ROMIPLOSTIM
     Dosage: 8 MUG/KG, QD
     Route: 058
     Dates: start: 20151022
  6. VENILON [Concomitant]
     Active Substance: HUMAN IMMUNOGLOBULIN G
     Indication: IMMUNE THROMBOCYTOPENIC PURPURA
     Dosage: 40 MG/KG, UNK
     Route: 042
     Dates: start: 20140723, end: 20141011
  7. KAMIKIHITO [Concomitant]
     Indication: IMMUNE THROMBOCYTOPENIC PURPURA
  8. CEPHARANTHINE [Concomitant]
     Active Substance: CEPHARANTHINE
     Indication: IMMUNE THROMBOCYTOPENIC PURPURA
  9. VENILON [Concomitant]
     Active Substance: HUMAN IMMUNOGLOBULIN G
     Indication: IMMUNE THROMBOCYTOPENIC PURPURA
     Dosage: 40 MG/KG, UNK
     Route: 042
     Dates: start: 20140723, end: 20140727
  10. ROMIPLOSTIM [Suspect]
     Active Substance: ROMIPLOSTIM
     Dosage: 6 MUG/KG, QD
     Route: 058
     Dates: start: 20140620
  11. ROMIPLOSTIM [Suspect]
     Active Substance: ROMIPLOSTIM
     Dosage: 9 MUG/KG, QWK
     Route: 058
     Dates: start: 20150226
  12. ROMIPLOSTIM [Suspect]
     Active Substance: ROMIPLOSTIM
     Dosage: 7 MUG/KG, QD
     Route: 058
     Dates: start: 20150910
  13. ROMIPLOSTIM [Suspect]
     Active Substance: ROMIPLOSTIM
     Dosage: 9 MUG/KG, QWK
     Route: 058
     Dates: start: 20151029
  14. VENILON [Concomitant]
     Active Substance: HUMAN IMMUNOGLOBULIN G
     Dosage: 40 MG/KG, UNK
     Route: 042
     Dates: start: 20141007, end: 20141011
  15. ADONA [Concomitant]
     Active Substance: CARBAZOCHROME SODIUM SULFONATE
     Indication: PROPHYLAXIS
     Dosage: UNK
     Route: 048
  16. FAMOTIDINE. [Concomitant]
     Active Substance: FAMOTIDINE
     Indication: PROPHYLAXIS
     Dosage: UNK
     Route: 048
  17. FOLIAMIN [Concomitant]
     Active Substance: FOLIC ACID
     Indication: PROPHYLAXIS
     Dosage: UNK
     Route: 048
  18. ROMIPLOSTIM [Suspect]
     Active Substance: ROMIPLOSTIM
     Dosage: 7 MUG/KG, QD
     Route: 058
     Dates: start: 20150917
  19. ROMIPLOSTIM [Suspect]
     Active Substance: ROMIPLOSTIM
     Dosage: 10 MUG/KG, QD
     Route: 058
     Dates: start: 20160114
  20. CEPHARANTHINE [Concomitant]
     Active Substance: CEPHARANTHINE
     Indication: IMMUNE THROMBOCYTOPENIC PURPURA
     Dosage: 4 MG, UNK
     Route: 048
     Dates: start: 20140219
  21. ROMIPLOSTIM [Suspect]
     Active Substance: ROMIPLOSTIM
     Dosage: 6 MUG/KG, QD
     Route: 058
     Dates: start: 20150514
  22. REVOLADE [Concomitant]
     Active Substance: ELTROMBOPAG
     Indication: IMMUNE THROMBOCYTOPENIC PURPURA
     Dosage: 50 MG, UNK
     Route: 048
     Dates: start: 20140204, end: 20140611
  23. PREMINENT [Concomitant]
     Active Substance: HYDROCHLOROTHIAZIDE\LOSARTAN POTASSIUM
     Indication: HYPERTENSION
     Dosage: UNK
     Route: 048
  24. XALATAN [Concomitant]
     Active Substance: LATANOPROST
     Indication: OCULAR HYPERTENSION
     Dosage: UNK
     Route: 047
  25. ROMIPLOSTIM [Suspect]
     Active Substance: ROMIPLOSTIM
     Dosage: 6 MUG/KG, QD
     Route: 058
     Dates: start: 20150514
  26. ROMIPLOSTIM [Suspect]
     Active Substance: ROMIPLOSTIM
     Dosage: 4 MUG/KG, QWK
     Route: 058
     Dates: start: 20150528
  27. ATORVASTATIN [Concomitant]
     Active Substance: ATORVASTATIN
     Indication: HYPERLIPIDAEMIA
     Dosage: UNK
     Route: 048
  28. METHYCOBAL [Concomitant]
     Active Substance: METHYLCOBALAMIN
     Indication: PROPHYLAXIS
     Dosage: UNK
     Route: 048
  29. REVLIMID [Concomitant]
     Active Substance: LENALIDOMIDE
     Indication: MONOCLONAL GAMMOPATHY
     Dosage: UNK
     Route: 048
  30. ROMIPLOSTIM [Suspect]
     Active Substance: ROMIPLOSTIM
     Indication: PRODUCT USED FOR UNKNOWN INDICATION
     Dosage: 5 MUG/KG, QD
     Route: 058
     Dates: start: 20140613
  31. ROMIPLOSTIM [Suspect]
     Active Substance: ROMIPLOSTIM
     Dosage: 5 MUG/KG, QWK
     Route: 058
     Dates: start: 20150611
  32. PREDONINE [Suspect]
     Active Substance: PREDNISOLONE
     Indication: PRODUCT USED FOR UNKNOWN INDICATION
     Dosage: UNK
     Route: 065
  33. SANCOBA [Concomitant]
     Active Substance: CYANOCOBALAMIN
     Indication: OCULAR HYPERTENSION
     Dosage: UNK
     Route: 047
  34. VELCADE [Concomitant]
     Active Substance: BORTEZOMIB
     Indication: MONOCLONAL GAMMOPATHY
     Dosage: 1.6 MG, QWK
     Route: 065
     Dates: start: 20150526, end: 20150924
  35. ROMIPLOSTIM [Suspect]
     Active Substance: ROMIPLOSTIM
     Dosage: 8 MUG/KG, QWK
     Route: 058
     Dates: start: 20150312
  36. ROMIPLOSTIM [Suspect]
     Active Substance: ROMIPLOSTIM
     Dosage: 7 MUG/KG, QWK
     Route: 058
     Dates: start: 20150430
  37. ROMIPLOSTIM [Suspect]
     Active Substance: ROMIPLOSTIM
     Dosage: 5 MUG/KG, QD
     Route: 058
     Dates: start: 20150521
  38. ROMIPLOSTIM [Suspect]
     Active Substance: ROMIPLOSTIM
     Dosage: 9 MUG/KG, QD
     Route: 058
     Dates: start: 20151228
  39. LENADEX [Suspect]
     Active Substance: DEXAMETHASONE ACETATE
     Indication: MONOCLONAL GAMMOPATHY
     Dosage: 4 MG, 2 TIMES/WK
     Route: 048
     Dates: start: 20150526
  40. KAMIKIHITO [Concomitant]
     Indication: IMMUNE THROMBOCYTOPENIC PURPURA
     Dosage: 7500 MG, UNK
     Route: 048
     Dates: start: 20140327, end: 20140616

REACTIONS (5)
  - Bone marrow myelogram abnormal [Unknown]
  - White blood cell count increased [Not Recovered/Not Resolved]
  - Bone marrow myelogram abnormal [Unknown]
  - Anaemia [Not Recovered/Not Resolved]
  - Plasma cell myeloma [Not Recovered/Not Resolved]

NARRATIVE: CASE EVENT DATE: 20150115
